FAERS Safety Report 24840780 (Version 3)
Quarter: 2025Q2

REPORT INFORMATION
  Report Type: Spontaneous
  Country: US (occurrence: US)
  Receive Date: 20250114
  Receipt Date: 20250625
  Transmission Date: 20250716
  Serious: Yes (Other)
  Sender: PFIZER
  Company Number: US-PFIZER INC-202500005876

PATIENT
  Age: 79 Year
  Sex: Female

DRUGS (1)
  1. IBRANCE [Suspect]
     Active Substance: PALBOCICLIB
     Indication: Breast cancer female
     Route: 048

REACTIONS (2)
  - Foot fracture [Unknown]
  - Fall [Unknown]
